FAERS Safety Report 10935798 (Version 1)
Quarter: 2015Q1

REPORT INFORMATION
  Report Type: Spontaneous
  Country: US (occurrence: US)
  Receive Date: 20150320
  Receipt Date: 20150320
  Transmission Date: 20150721
  Serious: No
  Sender: FDA-Public Use
  Company Number: US-BAYER-2015-034760

PATIENT
  Sex: Female

DRUGS (1)
  1. GADAVIST [Suspect]
     Active Substance: GADOBUTROL
     Dosage: UNK, ONCE

REACTIONS (7)
  - Syncope [None]
  - Dyspnoea [None]
  - Swelling face [None]
  - Erythema [None]
  - Musculoskeletal pain [None]
  - Mouth swelling [None]
  - Dysphonia [None]
